FAERS Safety Report 25282105 (Version 1)
Quarter: 2025Q2

REPORT INFORMATION
  Report Type: Spontaneous
  Country: US (occurrence: US)
  Receive Date: 20250508
  Receipt Date: 20250508
  Transmission Date: 20250717
  Serious: Yes (Hospitalization)
  Sender: ABBVIE
  Company Number: US-TEVA-VS-3327368

PATIENT
  Age: 53 Year
  Sex: Male

DRUGS (1)
  1. TESTOSTERONE [Suspect]
     Active Substance: TESTOSTERONE
     Indication: Hypogonadism male
     Route: 065

REACTIONS (3)
  - Hepatic adenoma [Recovering/Resolving]
  - Hepatic cancer [Recovering/Resolving]
  - Hepatic haemorrhage [Recovering/Resolving]
